FAERS Safety Report 14537000 (Version 2)
Quarter: 2019Q1

REPORT INFORMATION
  Report Type: Spontaneous
  Country: FR (occurrence: FR)
  Receive Date: 20180215
  Receipt Date: 20190120
  Transmission Date: 20190417
  Serious: Yes (Hospitalization, Other)
  Sender: FDA-Public Use
  Company Number: FR-BRISTOL-MYERS SQUIBB COMPANY-BMS-2018-012025

PATIENT
  Age: 58 Year
  Sex: Female

DRUGS (2)
  1. OPDIVO [Suspect]
     Active Substance: NIVOLUMAB
     Indication: MALIGNANT MELANOMA
     Dosage: 50 MG, UNK
     Route: 041
     Dates: start: 20170324
  2. YERVOY [Suspect]
     Active Substance: IPILIMUMAB
     Indication: MALIGNANT MELANOMA
     Dosage: 150 MG, UNK
     Route: 041
     Dates: start: 20170324, end: 20170419

REACTIONS (3)
  - Prescribed underdose [Unknown]
  - Hepatocellular injury [Recovered/Resolved]
  - Cholestasis [Recovered/Resolved]

NARRATIVE: CASE EVENT DATE: 20170427
